FAERS Safety Report 5143620-1 (Version None)
Quarter: 2006Q4

REPORT INFORMATION
  Report Type: 
  Country: None (occurrence: None)
  Receive Date: 20061030
  Receipt Date: 20061017
  Transmission Date: 20070319
  Serious: Yes (Other)
  Sender: FDA-Public Use
  Company Number: 2006126956

PATIENT
  Sex: Male

DRUGS (3)
  1. CAVERJECT [Suspect]
     Indication: ERECTILE DYSFUNCTION
  2. VIAGRA [Suspect]
  3. CIALIS [Suspect]

REACTIONS (6)
  - DRUG INEFFECTIVE [None]
  - FEELING COLD [None]
  - HYPERHIDROSIS [None]
  - PAIN [None]
  - PYREXIA [None]
  - TREMOR [None]
